FAERS Safety Report 16311366 (Version 4)
Quarter: 2024Q4

REPORT INFORMATION
  Report Type: Spontaneous
  Country: FR (occurrence: FR)
  Receive Date: 20190514
  Receipt Date: 20241209
  Transmission Date: 20250114
  Serious: Yes (Hospitalization, Other)
  Sender: MYLAN
  Company Number: None

PATIENT
  Age: 70 Year
  Sex: Female

DRUGS (6)
  1. TRAMADOL [Suspect]
     Active Substance: TRAMADOL
     Indication: Back pain
     Dosage: 50 MG, TID (3/DAY)
     Route: 048
     Dates: start: 20180601, end: 20180606
  2. TRAMADOL [Suspect]
     Active Substance: TRAMADOL
     Dosage: 50 MILLIGRAM, Q3D
     Route: 065
     Dates: start: 20180601, end: 20180606
  3. TRAMADOL [Suspect]
     Active Substance: TRAMADOL
     Dosage: 100 MG, TID (3/DAY)
     Route: 065
     Dates: start: 20180606, end: 20180606
  4. PRAVASTATIN [Suspect]
     Active Substance: PRAVASTATIN
     Indication: Product used for unknown indication
     Dosage: BOLUS
     Route: 065
     Dates: start: 20180601, end: 20180606
  5. PROPRANOLOL [Suspect]
     Active Substance: PROPRANOLOL HYDROCHLORIDE
     Indication: Product used for unknown indication
     Dosage: BOLUS
     Route: 065
     Dates: start: 20180601, end: 20180606
  6. INSULIN NOS [Suspect]
     Active Substance: INSULIN NOS
     Indication: Product used for unknown indication
     Dosage: BOLUS
     Route: 065
     Dates: start: 20180601, end: 20180606

REACTIONS (5)
  - Loss of consciousness [Recovered/Resolved]
  - Malaise [Recovered/Resolved]
  - Hypoglycaemia [Recovered/Resolved]
  - Off label use [Unknown]
  - Product use issue [Unknown]

NARRATIVE: CASE EVENT DATE: 20180606
